FAERS Safety Report 18331805 (Version 2)
Quarter: 2020Q4

REPORT INFORMATION
  Report Type: Spontaneous
  Country: IT (occurrence: IT)
  Receive Date: 20200930
  Receipt Date: 20201015
  Transmission Date: 20210113
  Serious: Yes (Death)
  Sender: FDA-Public Use
  Company Number: NVSC2020IT265306

PATIENT
  Age: 85 Year
  Sex: Male

DRUGS (19)
  1. ANTRA I.V. [Concomitant]
     Indication: PRODUCT USED FOR UNKNOWN INDICATION
     Dosage: 40 MG
     Route: 065
     Dates: end: 20200520
  2. NORADRENALIN [Concomitant]
     Active Substance: NOREPINEPHRINE\NOREPINEPHRINE BITARTRATE
     Indication: PRODUCT USED FOR UNKNOWN INDICATION
     Dosage: UNK (0.15 ?/KG/M)
     Route: 065
     Dates: end: 20200520
  3. SPIRIVA [Concomitant]
     Active Substance: TIOTROPIUM BROMIDE MONOHYDRATE
     Indication: PRODUCT USED FOR UNKNOWN INDICATION
     Dosage: UNK (2 PUFF)
     Route: 065
     Dates: end: 20200520
  4. ULTIVA [Concomitant]
     Active Substance: REMIFENTANIL HYDROCHLORIDE
     Indication: PRODUCT USED FOR UNKNOWN INDICATION
     Dosage: UNK (0.10 ?/KG/M)
     Route: 065
     Dates: end: 20200520
  5. ILARIS [Suspect]
     Active Substance: CANAKINUMAB
     Indication: MULTIPLE ORGAN DYSFUNCTION SYNDROME
     Dosage: 300 MG, SINGLE ON DAY 25 AND 31
     Route: 058
     Dates: end: 20200423
  6. CLEXANE [Concomitant]
     Active Substance: ENOXAPARIN SODIUM
     Indication: PRODUCT USED FOR UNKNOWN INDICATION
     Dosage: 6000 IU, BID
     Route: 058
     Dates: end: 20200520
  7. TOBRAL [Concomitant]
     Active Substance: TOBRAMYCIN
     Indication: PRODUCT USED FOR UNKNOWN INDICATION
     Dosage: UNK, (1 GTT) QID
     Route: 065
     Dates: end: 20200508
  8. CONGESCOR [Concomitant]
     Active Substance: BISOPROLOL
     Indication: PRODUCT USED FOR UNKNOWN INDICATION
     Dosage: 1.25 MG
     Route: 065
     Dates: end: 20200520
  9. DACRIOGEL [Concomitant]
     Indication: PRODUCT USED FOR UNKNOWN INDICATION
     Dosage: UNK, (1 GTT) QID
     Route: 065
     Dates: end: 20200508
  10. LASIX [Concomitant]
     Active Substance: FUROSEMIDE
     Indication: PRODUCT USED FOR UNKNOWN INDICATION
     Dosage: UNK (125 MG IN SF 50ML AT 2.1 ML/H)
     Route: 065
     Dates: end: 20200520
  11. ALITRAQ [Concomitant]
     Indication: PRODUCT USED FOR UNKNOWN INDICATION
     Dosage: 50 ML, QH
     Route: 065
     Dates: end: 20200507
  12. PLAVIX [Concomitant]
     Active Substance: CLOPIDOGREL BISULFATE
     Indication: PRODUCT USED FOR UNKNOWN INDICATION
     Dosage: 75 MG, GNT
     Route: 065
     Dates: end: 20200512
  13. NACL [Concomitant]
     Active Substance: SODIUM CHLORIDE
     Indication: PRODUCT USED FOR UNKNOWN INDICATION
     Dosage: 30 ML, QH
     Route: 065
     Dates: end: 20200520
  14. ESMERON [Concomitant]
     Active Substance: ROCURONIUM BROMIDE
     Indication: PRODUCT USED FOR UNKNOWN INDICATION
     Dosage: UNK (50 MG AT 2.5 ML/H)
     Route: 065
     Dates: end: 20200509
  15. ILARIS [Suspect]
     Active Substance: CANAKINUMAB
     Indication: COVID-19
  16. ILARIS [Suspect]
     Active Substance: CANAKINUMAB
     Indication: CYTOKINE STORM
  17. BASSADO [Concomitant]
     Active Substance: DOXYCYCLINE
     Indication: PRODUCT USED FOR UNKNOWN INDICATION
     Dosage: 100 MG, BID GNT
     Route: 065
     Dates: end: 20200510
  18. PROPOFOL. [Concomitant]
     Active Substance: PROPOFOL
     Indication: PRODUCT USED FOR UNKNOWN INDICATION
     Dosage: 1 MG/KG, QH
     Route: 065
     Dates: end: 20200520
  19. ABOUND [Concomitant]
     Indication: PRODUCT USED FOR UNKNOWN INDICATION
     Dosage: UNK (1 SACHET IN SF 120 ML GNT B.I.D.)
     Route: 065
     Dates: end: 20200510

REACTIONS (3)
  - Product use in unapproved indication [Unknown]
  - Superinfection [Fatal]
  - Respiratory tract infection bacterial [Fatal]
